FAERS Safety Report 4314136-7 (Version None)
Quarter: 2004Q1

REPORT INFORMATION
  Report Type: 
  Country: None (occurrence: None)
  Receive Date: 20040308
  Receipt Date: 20040308
  Transmission Date: 20041129
  Serious: Yes (Hospitalization)
  Sender: FDA-Public Use
  Company Number: None

PATIENT
  Sex: Male
  Weight: 122 kg

DRUGS (8)
  1. SIMVASTATIN [Suspect]
     Indication: DYSLIPIDAEMIA
     Dosage: 80 MG HS ORAL
     Route: 048
     Dates: start: 20010731, end: 20031212
  2. GEMFIBROZIL [Suspect]
     Indication: DYSLIPIDAEMIA
     Dosage: 600 MG HS ORAL
     Route: 048
     Dates: start: 20020206, end: 20031207
  3. AMITRIPTYLINE HCL [Concomitant]
  4. LISINOPRIL [Concomitant]
  5. LORAZEPAM [Concomitant]
  6. RANITIDINE HCL [Concomitant]
  7. TIMOLOL MALEATE [Concomitant]
  8. TRAVOPROST [Concomitant]

REACTIONS (1)
  - RHABDOMYOLYSIS [None]
